FAERS Safety Report 11064392 (Version 2)
Quarter: 2015Q2

REPORT INFORMATION
  Report Type: Spontaneous
  Country: US (occurrence: US)
  Receive Date: 20150424
  Receipt Date: 20150429
  Transmission Date: 20150821
  Serious: Yes (Congenital Anomaly)
  Sender: FDA-Public Use
  Company Number: US-ABBVIE-05P-163-0289069-00

PATIENT
  Sex: Male
  Weight: 1.76 kg

DRUGS (5)
  1. SPORANOX [Suspect]
     Active Substance: ITRACONAZOLE\SODIUM CHLORIDE
     Indication: MATERNAL EXPOSURE TIMING UNSPECIFIED
     Route: 064
  2. KALETRA [Suspect]
     Active Substance: LOPINAVIR\RITONAVIR
     Indication: MATERNAL EXPOSURE TIMING UNSPECIFIED
     Route: 064
  3. EPIVIR [Suspect]
     Active Substance: LAMIVUDINE
     Indication: MATERNAL EXPOSURE TIMING UNSPECIFIED
     Route: 064
  4. ZERIT [Suspect]
     Active Substance: STAVUDINE
     Indication: MATERNAL EXPOSURE TIMING UNSPECIFIED
     Route: 064
  5. RETROVIR [Concomitant]
     Active Substance: ZIDOVUDINE
     Indication: MATERNAL EXPOSURE TIMING UNSPECIFIED

REACTIONS (19)
  - Meconium stain [Unknown]
  - Small for dates baby [Unknown]
  - Penile size reduced [Unknown]
  - Cerebral atrophy congenital [Unknown]
  - Ear malformation [Unknown]
  - Foetal disorder [Unknown]
  - Mucous membrane disorder [Unknown]
  - Tendon disorder [Unknown]
  - Livedo reticularis [Unknown]
  - Umbilical cord abnormality [Unknown]
  - Infantile spitting up [Unknown]
  - Hypertonia [Unknown]
  - Microcephaly [Unknown]
  - Joint contracture [Unknown]
  - Muscle tightness [Unknown]
  - Opisthotonus [Unknown]
  - Nervous system disorder [Unknown]
  - Cerebral ventricle dilatation [Unknown]
  - Candida infection [Unknown]

NARRATIVE: CASE EVENT DATE: 20040831
